FAERS Safety Report 8607967-6 (Version None)
Quarter: 2012Q3

REPORT INFORMATION
  Report Type: 
  Country: None (occurrence: None)
  Receive Date: 20120821
  Receipt Date: 20120816
  Transmission Date: 20120928
  Serious: Yes (Other)
  Sender: FDA-Public Use
  Company Number: US-PFIZER INC-2012202145

PATIENT
  Age: 64 Year
  Sex: Female
  Weight: 113 kg

DRUGS (4)
  1. WELLBUTRIN [Suspect]
     Indication: DEPRESSION
     Dosage: UNK
  2. LISINOPRIL [Concomitant]
     Indication: HYPERTENSION
     Dosage: 20 MG, DAILY
  3. LEVOTHYROXINE SODIUM [Concomitant]
     Indication: THYROID DISORDER
     Dosage: 200 MG, DAILY
  4. PRISTIQ [Suspect]
     Indication: DEPRESSION
     Dosage: 200 MG, DAILY
     Dates: end: 20120701

REACTIONS (4)
  - DEPRESSION [None]
  - ACTIVITIES OF DAILY LIVING IMPAIRED [None]
  - DRUG INEFFECTIVE [None]
  - EUPHORIC MOOD [None]
